FAERS Safety Report 10488392 (Version 1)
Quarter: 2014Q3

REPORT INFORMATION
  Report Type: Spontaneous
  Country: NO (occurrence: None)
  Receive Date: 20140923
  Receipt Date: 20140923
  Transmission Date: 20150326
  Serious: Yes (Death)
  Sender: FDA-Public Use
  Company Number: HAPL-004-14-NO

PATIENT
  Age: 72 Year
  Sex: Female

DRUGS (1)
  1. HUMAN ALBUMIN [Suspect]
     Active Substance: ALBUMIN (HUMAN)
     Indication: HYPOALBUMINAEMIA
     Dosage: 2 DF
     Route: 042
     Dates: start: 20140819, end: 20140819

REACTIONS (5)
  - Malnutrition [None]
  - Dyspnoea [None]
  - Hypervolaemia [None]
  - Oxygen saturation decreased [None]
  - Pulmonary oedema [None]

NARRATIVE: CASE EVENT DATE: 201408
